FAERS Safety Report 11887761 (Version 4)
Quarter: 2018Q4

REPORT INFORMATION
  Report Type: Spontaneous
  Country: GB (occurrence: GB)
  Receive Date: 20160105
  Receipt Date: 20181105
  Transmission Date: 20190204
  Serious: Yes (Hospitalization, Other)
  Sender: FDA-Public Use
  Company Number: GB-AUROBINDO-AUR-APL-2015-12113

PATIENT
  Age: 57 Year
  Sex: Female

DRUGS (4)
  1. DULOXETINE. [Concomitant]
     Active Substance: DULOXETINE
     Indication: PRODUCT USED FOR UNKNOWN INDICATION
     Dosage: 30 MILLIGRAM, DAILY
     Route: 065
  2. CITALOPRAM [Suspect]
     Active Substance: CITALOPRAM HYDROBROMIDE
     Indication: DEPRESSED MOOD
     Dosage: 20 MILLIGRAM
     Route: 065
  3. LORAZEPAM. [Concomitant]
     Active Substance: LORAZEPAM
     Indication: PRODUCT USED FOR UNKNOWN INDICATION
     Dosage: 1 MILLIGRAM, DAILY
     Route: 065
  4. CITALOPRAM [Suspect]
     Active Substance: CITALOPRAM HYDROBROMIDE
     Indication: ANXIETY

REACTIONS (18)
  - Insomnia [Recovering/Resolving]
  - Depressive symptom [Recovering/Resolving]
  - Depressed mood [Recovering/Resolving]
  - Anxiety [Recovering/Resolving]
  - Loss of personal independence in daily activities [Recovering/Resolving]
  - Drug withdrawal syndrome [Recovered/Resolved]
  - Emotional distress [Recovering/Resolving]
  - Female sexual arousal disorder [Recovered/Resolved]
  - Tremor [Recovering/Resolving]
  - Vulvovaginal discomfort [Recovering/Resolving]
  - Atrophic vulvovaginitis [Recovering/Resolving]
  - Decreased appetite [Recovering/Resolving]
  - Anhedonia [Recovering/Resolving]
  - Helplessness [Recovering/Resolving]
  - Dry mouth [Recovering/Resolving]
  - Suicidal ideation [Recovering/Resolving]
  - Palpitations [Recovering/Resolving]
  - Disturbance in attention [Recovering/Resolving]
